FAERS Safety Report 4565800-6 (Version None)
Quarter: 2005Q1

REPORT INFORMATION
  Report Type: 
  Country: None (occurrence: None)
  Receive Date: 20050128
  Receipt Date: 20041214
  Transmission Date: 20050727
  Serious: Yes (Other)
  Sender: FDA-Public Use
  Company Number: 2005011978

PATIENT
  Age: 56 Year
  Sex: Female

DRUGS (3)
  1. EXEMESTANE (EXEMESTANE) [Suspect]
     Indication: ILL-DEFINED DISORDER
     Dosage: ORAL
     Route: 048
  2. TAMOXIFEN (TAMOXIFEN) [Concomitant]
  3. ANASTROZOLE (ANASTROZOLE) [Concomitant]

REACTIONS (2)
  - INTERSTITIAL LUNG DISEASE [None]
  - LYMPHANGIOSIS CARCINOMATOSA [None]
